FAERS Safety Report 4581345-1 (Version None)
Quarter: 2005Q1

REPORT INFORMATION
  Report Type: 
  Country: None (occurrence: None)
  Receive Date: 20050214
  Receipt Date: 20040831
  Transmission Date: 20050727
  Serious: No
  Sender: FDA-Public Use
  Company Number: US-GLAXOSMITHKLINE-A0528226A

PATIENT
  Age: 31 Year
  Sex: Female

DRUGS (3)
  1. LAMICTAL [Suspect]
     Dosage: 25MG AT NIGHT
     Route: 048
     Dates: start: 20040703, end: 20040710
  2. LEXAPRO [Concomitant]
     Route: 048
  3. XANAX [Concomitant]
     Route: 048

REACTIONS (2)
  - HYPOAESTHESIA [None]
  - MIGRAINE [None]
